FAERS Safety Report 7512644-9 (Version None)
Quarter: 2011Q2

REPORT INFORMATION
  Report Type: 
  Country: None (occurrence: None)
  Receive Date: 20110520
  Receipt Date: 20110510
  Transmission Date: 20111010
  Serious: Yes (Other)
  Sender: FDA-Public Use
  Company Number: JPI-P-014516

PATIENT
  Age: 58 Year
  Sex: Female
  Weight: 49.8957 kg

DRUGS (17)
  1. RANITIDINE [Concomitant]
  2. PANTOPRAZOLE [Concomitant]
  3. LISDEXAMFETAMINE DIMESYLATE [Concomitant]
  4. THYROID HORMONE [Concomitant]
  5. PROGESTERONE [Concomitant]
  6. XYREM [Suspect]
     Indication: SLEEP DISORDER
     Dosage: SEE IMAGE
     Route: 048
     Dates: start: 20110310, end: 20110316
  7. XYREM [Suspect]
     Indication: NARCOLEPSY
     Dosage: SEE IMAGE
     Route: 048
     Dates: start: 20110310, end: 20110316
  8. XYREM [Suspect]
     Indication: SOMNOLENCE
     Dosage: SEE IMAGE
     Route: 048
     Dates: start: 20110310, end: 20110316
  9. XYREM [Suspect]
     Indication: SLEEP DISORDER
     Dosage: SEE IMAGE
     Route: 048
     Dates: start: 20110317, end: 20110330
  10. XYREM [Suspect]
     Indication: NARCOLEPSY
     Dosage: SEE IMAGE
     Route: 048
     Dates: start: 20110317, end: 20110330
  11. XYREM [Suspect]
     Indication: SOMNOLENCE
     Dosage: SEE IMAGE
     Route: 048
     Dates: start: 20110317, end: 20110330
  12. XYREM [Suspect]
     Indication: SLEEP DISORDER
     Dosage: SEE IMAGE
     Route: 048
     Dates: start: 20110101
  13. XYREM [Suspect]
     Indication: NARCOLEPSY
     Dosage: SEE IMAGE
     Route: 048
     Dates: start: 20110101
  14. XYREM [Suspect]
     Indication: SOMNOLENCE
     Dosage: SEE IMAGE
     Route: 048
     Dates: start: 20110101
  15. XYREM [Suspect]
     Indication: SLEEP DISORDER
     Dosage: SEE IMAGE
     Route: 048
     Dates: start: 20110331, end: 20110101
  16. XYREM [Suspect]
     Indication: NARCOLEPSY
     Dosage: SEE IMAGE
     Route: 048
     Dates: start: 20110331, end: 20110101
  17. XYREM [Suspect]
     Indication: SOMNOLENCE
     Dosage: SEE IMAGE
     Route: 048
     Dates: start: 20110331, end: 20110101

REACTIONS (23)
  - CONDITION AGGRAVATED [None]
  - HEART RATE [None]
  - DEPRESSION [None]
  - DISORIENTATION [None]
  - FEELING JITTERY [None]
  - FOOT FRACTURE [None]
  - TREMOR [None]
  - FEELING ABNORMAL [None]
  - WEIGHT DECREASED [None]
  - INSOMNIA [None]
  - POLLAKIURIA [None]
  - ASTHENIA [None]
  - SOMNOLENCE [None]
  - RESTLESS LEGS SYNDROME [None]
  - NOCTURIA [None]
  - HEART RATE INCREASED [None]
  - HYPOAESTHESIA [None]
  - DYSGEUSIA [None]
  - FEELING HOT [None]
  - HYPOPHAGIA [None]
  - DIZZINESS [None]
  - CONFUSIONAL STATE [None]
  - VISION BLURRED [None]
